FAERS Safety Report 21547369 (Version 1)
Quarter: 2022Q4

REPORT INFORMATION
  Report Type: Spontaneous
  Country: JP (occurrence: JP)
  Receive Date: 20221103
  Receipt Date: 20221103
  Transmission Date: 20230113
  Serious: Yes (Other)
  Sender: FDA-Public Use
  Company Number: JP-CELLTRION INC.-2022JP017833

PATIENT

DRUGS (7)
  1. INFLIXIMAB [Suspect]
     Active Substance: INFLIXIMAB
     Indication: Enterocolitis
     Dosage: (300 MG/BODY; 5 MG/KG) WERE ADMINISTERED TWICE,0 AND 2 WEEKS
  2. INFLIXIMAB [Suspect]
     Active Substance: INFLIXIMAB
     Dosage: (300 MG/BODY; 5 MG/KG) WERE ADMINISTERED TWICE,0 AND 2 WEEKS
  3. IPILIMUMAB [Suspect]
     Active Substance: IPILIMUMAB
     Indication: Renal cell carcinoma stage IV
     Dosage: NIVOLUMAB 240 MG/BODY WEIGHT, IPILIMUMAB 1 MG/KG; WITH INTERVAL 3 WEEKS; FIRST LINE TREATMENT
  4. IPILIMUMAB [Suspect]
     Active Substance: IPILIMUMAB
     Dosage: NIVOLUMAB 240 MG/BODY WEIGHT, IPILIMUMAB 1 MG/KG; WITH INTERVAL 3 WEEKS; FIRST LINE TREATMENT
  5. IPILIMUMAB [Suspect]
     Active Substance: IPILIMUMAB
     Dosage: NIVOLUMAB 240 MG/BODY WEIGHT, IPILIMUMAB 1 MG/KG; WITH INTERVAL 3 WEEKS; FIRST LINE TREATMENT
  6. PREDNISOLONE [Suspect]
     Active Substance: PREDNISOLONE
     Indication: Enterocolitis
     Dosage: 30 MG/DAY (0.5 MG/KG)
  7. PREDNISOLONE [Suspect]
     Active Substance: PREDNISOLONE
     Dosage: 60 MG/DAY (1 MG/KG)

REACTIONS (3)
  - Clostridium difficile infection [Unknown]
  - Drug ineffective for unapproved indication [Unknown]
  - Off label use [Unknown]
